FAERS Safety Report 21132406 (Version 3)
Quarter: 2022Q4

REPORT INFORMATION
  Report Type: Report from Study
  Country: US (occurrence: US)
  Receive Date: 20220726
  Receipt Date: 20221220
  Transmission Date: 20230112
  Serious: Yes (Hospitalization, Disabling, Other)
  Sender: FDA-Public Use
  Company Number: US-ABBVIE-22K-163-4480378-00

PATIENT
  Sex: Male
  Weight: 106.59 kg

DRUGS (1)
  1. IMBRUVICA [Suspect]
     Active Substance: IBRUTINIB
     Indication: Chronic lymphocytic leukaemia
     Route: 048
     Dates: start: 20220429, end: 20220720

REACTIONS (7)
  - Cerebral haemorrhage [Recovering/Resolving]
  - Haemorrhage intracranial [Unknown]
  - Haemorrhagic stroke [Recovering/Resolving]
  - Cerebrovascular accident [Recovering/Resolving]
  - Dysgraphia [Unknown]
  - Hemiparesis [Unknown]
  - Paralysis [Recovering/Resolving]

NARRATIVE: CASE EVENT DATE: 20220101
